FAERS Safety Report 4871942-8 (Version None)
Quarter: 2006Q1

REPORT INFORMATION
  Report Type: 
  Country: None (occurrence: None)
  Receive Date: 20060104
  Receipt Date: 20030409
  Transmission Date: 20060701
  Serious: Yes (Hospitalization)
  Sender: FDA-Public Use
  Company Number: CA-ROCHE-335739

PATIENT
  Age: 52 Year
  Sex: Male
  Weight: 82 kg

DRUGS (5)
  1. THL-2 [Suspect]
     Indication: OBESITY
     Route: 048
     Dates: start: 20030320, end: 20030406
  2. PLACEBO [Suspect]
     Indication: OBESITY
     Route: 048
     Dates: start: 20030320, end: 20030406
  3. LOPRESSOR [Concomitant]
     Dates: start: 19970615
  4. LIPITOR [Concomitant]
     Dates: start: 20000615
  5. ENTROPHEN [Concomitant]
     Dates: start: 19970615

REACTIONS (1)
  - DIVERTICULITIS [None]
